APPROVED DRUG PRODUCT: OMTRYG
Active Ingredient: OMEGA-3-ACID ETHYL ESTERS TYPE A
Strength: 1.2GM CONTAINS AT LEAST 900MG OF THE ETHYL ESTERS OF OMEGA-3 FATTY ACIDS
Dosage Form/Route: CAPSULE;ORAL
Application: N204977 | Product #001
Applicant: OSMOTICA PHARMACEUTICAL US LLC
Approved: Apr 23, 2014 | RLD: Yes | RS: No | Type: DISCN